FAERS Safety Report 25948781 (Version 1)
Quarter: 2025Q4

REPORT INFORMATION
  Report Type: Spontaneous
  Country: US (occurrence: US)
  Receive Date: 20251022
  Receipt Date: 20251022
  Transmission Date: 20260117
  Serious: No
  Sender: GALPHARM INTERNATIONAL
  Company Number: US-PERRIGO-24US009031

PATIENT

DRUGS (1)
  1. CHILDRENS CETIRIZINE HYDROCHLORIDE ALLERGY [Suspect]
     Active Substance: CETIRIZINE HYDROCHLORIDE
     Indication: Skin disorder
     Dosage: UNKNOWN, UNKNOWN
     Route: 048

REACTIONS (2)
  - Skin irritation [Unknown]
  - Drug ineffective for unapproved indication [Unknown]
